FAERS Safety Report 9559646 (Version 1)
Quarter: 2013Q3

REPORT INFORMATION
  Report Type: Spontaneous
  Country: GB (occurrence: GB)
  Receive Date: 20130927
  Receipt Date: 20130927
  Transmission Date: 20140515
  Serious: Yes (Other)
  Sender: FDA-Public Use
  Company Number: PHHY2013GB105579

PATIENT
  Age: 64 Year
  Sex: Male
  Weight: 115.9 kg

DRUGS (1)
  1. AMIODARONE [Suspect]
     Dosage: 900MG IN 500ML 5% DEXTROSE
     Route: 042
     Dates: start: 20130909, end: 20130909

REACTIONS (3)
  - Renal impairment [Recovered/Resolved]
  - Liver function test abnormal [Recovered/Resolved]
  - Phlebitis [Not Recovered/Not Resolved]
